FAERS Safety Report 5036471-X (Version None)
Quarter: 2006Q2

REPORT INFORMATION
  Report Type: 
  Country: None (occurrence: None)
  Receive Date: 20060628
  Receipt Date: 20060616
  Transmission Date: 20061013
  Serious: Yes (Hospitalization)
  Sender: FDA-Public Use
  Company Number: PHFR2006GB02012

PATIENT
  Age: 48 Year
  Sex: Female

DRUGS (1)
  1. LAMISIL [Suspect]
     Indication: TINEA PEDIS
     Dosage: 250 MG/DAY
     Route: 048
     Dates: start: 20060519, end: 20060603

REACTIONS (5)
  - BLISTER [None]
  - DYSPNOEA [None]
  - JOINT SWELLING [None]
  - SKIN EXFOLIATION [None]
  - SKIN REACTION [None]
